FAERS Safety Report 7623845-3 (Version None)
Quarter: 2011Q3

REPORT INFORMATION
  Report Type: 
  Country: None (occurrence: None)
  Receive Date: 20110720
  Receipt Date: 20110715
  Transmission Date: 20111222
  Serious: Yes (Other)
  Sender: FDA-Public Use
  Company Number: US-PFIZER INC-2011161093

PATIENT
  Sex: Male
  Weight: 102.4 kg

DRUGS (4)
  1. VALPROIC ACID [Concomitant]
     Dosage: UNK
  2. LYRICA [Suspect]
     Indication: PAIN
     Dosage: 150 MG, 3X/DAY
     Route: 048
     Dates: start: 20091201
  3. OXYCODONE [Concomitant]
     Dosage: 50 MG
  4. ZYRTEC [Concomitant]
     Indication: HYPERSENSITIVITY
     Dosage: UNK

REACTIONS (2)
  - FALL [None]
  - FOOT FRACTURE [None]
